FAERS Safety Report 25751600 (Version 1)
Quarter: 2025Q3

REPORT INFORMATION
  Report Type: Spontaneous
  Country: CN (occurrence: CN)
  Receive Date: 20250902
  Receipt Date: 20250902
  Transmission Date: 20251021
  Serious: Yes (Hospitalization)
  Sender: BAYER HEALTHCARE PHARMACEUTICALS INC.
  Company Number: CN-BAYER-2025A114595

PATIENT
  Age: 57 Year
  Sex: Male
  Weight: 100 kg

DRUGS (1)
  1. AVELOX [Suspect]
     Active Substance: MOXIFLOXACIN HYDROCHLORIDE
     Indication: Skin infection
     Dosage: 0.4 G, QD
     Route: 041
     Dates: start: 20250811, end: 20250811

REACTIONS (8)
  - Rash pruritic [Unknown]
  - Atrioventricular block [Unknown]
  - Palpitations [None]
  - Asthenia [None]
  - Chest discomfort [None]
  - Erythema [None]
  - Heart rate decreased [None]
  - Blood pressure decreased [None]

NARRATIVE: CASE EVENT DATE: 20250811
